FAERS Safety Report 4386939-4 (Version None)
Quarter: 2004Q2

REPORT INFORMATION
  Report Type: 
  Country: None (occurrence: None)
  Receive Date: 20040626
  Receipt Date: 20040609
  Transmission Date: 20050107
  Serious: Yes (Death, Hospitalization)
  Sender: FDA-Public Use
  Company Number: 2004JP001027

PATIENT
  Age: 9 Month
  Sex: Female
  Weight: 5.2 kg

DRUGS (8)
  1. PROGRAF [Suspect]
     Indication: BONE MARROW TRANSPLANT
     Dosage: 15.00 UG/KG,INTRAVENOUS
     Route: 042
     Dates: start: 20040513, end: 20040518
  2. STRONG NEO-MINOPHAGEN C (AMINOACETIC ACID, CYSTEINE, GLYCYRRHIZIC ACID [Concomitant]
  3. TAGAMET FOR INJECTION (CIMETIDINE HYDROCHLORIDE) [Concomitant]
  4. DALACIN (CLINDAMYCIN HYDROCHLORIDE) [Concomitant]
  5. MODACIN (CEFTAZIDIME) [Concomitant]
  6. PANTOL (DEXPANTHENOL) [Concomitant]
  7. FUNGUARD (MICAFUNGIN) INJECTION [Concomitant]
  8. INOVAN (DOPAMINE HYDROCHLORIDE) [Concomitant]

REACTIONS (7)
  - CEREBRAL ATROPHY [None]
  - EYE MOVEMENT DISORDER [None]
  - HAEMORRHAGE INTRACRANIAL [None]
  - HYDROCEPHALUS [None]
  - RESPIRATORY ARREST [None]
  - RESPIRATORY FAILURE [None]
  - TONIC CONVULSION [None]
